FAERS Safety Report 18445994 (Version 1)
Quarter: 2020Q4

REPORT INFORMATION
  Report Type: Spontaneous
  Country: US (occurrence: US)
  Receive Date: 20201030
  Receipt Date: 20201030
  Transmission Date: 20210114
  Serious: Yes (Hospitalization)
  Sender: FDA-Public Use
  Company Number: US-UNICHEM PHARMACEUTICALS (USA) INC-UCM202010-001279

PATIENT
  Age: 54 Year
  Sex: Male

DRUGS (1)
  1. AMLODIPINE [Suspect]
     Active Substance: AMLODIPINE BESYLATE
     Indication: INTENTIONAL OVERDOSE
     Dosage: INTENTIONAL OVERDOSE OF 70 AMLODIPINE TABLETS

REACTIONS (8)
  - Hypotension [Recovered/Resolved]
  - Pulmonary oedema [Unknown]
  - Nausea [Unknown]
  - Organising pneumonia [Unknown]
  - Respiratory failure [Recovered/Resolved]
  - Intentional overdose [Unknown]
  - Chest pain [Unknown]
  - Tachycardia [Unknown]
